FAERS Safety Report 7061610-9 (Version None)
Quarter: 2010Q4

REPORT INFORMATION
  Report Type: 
  Country: None (occurrence: None)
  Receive Date: 20101026
  Receipt Date: 20101018
  Transmission Date: 20110411
  Serious: Yes (Hospitalization)
  Sender: FDA-Public Use
  Company Number: FR-SANOFI-AVENTIS-2010SA063438

PATIENT
  Age: 72 Year
  Sex: Female

DRUGS (9)
  1. FLUDEX [Suspect]
     Route: 048
     Dates: end: 20100420
  2. FLUDEX [Suspect]
     Route: 048
     Dates: start: 20100701
  3. NEXIUM [Suspect]
     Indication: PRODUCT USED FOR UNKNOWN INDICATION
     Route: 048
  4. OLMESARTAN MEDOXOMIL [Suspect]
     Route: 048
     Dates: end: 20100420
  5. OLMESARTAN MEDOXOMIL [Suspect]
     Route: 048
     Dates: start: 20100428
  6. AMLODIPINE [Suspect]
     Route: 048
     Dates: end: 20100420
  7. AMLODIPINE [Suspect]
     Route: 048
     Dates: start: 20100428
  8. CRESTOR [Concomitant]
     Indication: PRODUCT USED FOR UNKNOWN INDICATION
     Route: 065
  9. PLAVIX [Concomitant]
     Indication: PRODUCT USED FOR UNKNOWN INDICATION
     Route: 065

REACTIONS (5)
  - ABDOMINAL PAIN [None]
  - DEHYDRATION [None]
  - FAECALOMA [None]
  - HYPONATRAEMIA [None]
  - LEUKOCYTOSIS [None]
